FAERS Safety Report 22971818 (Version 3)
Quarter: 2023Q4

REPORT INFORMATION
  Report Type: Spontaneous
  Country: US (occurrence: US)
  Receive Date: 20230922
  Receipt Date: 20231110
  Transmission Date: 20240109
  Serious: Yes (Other)
  Sender: FDA-Public Use
  Company Number: US-SA-SAC20230915000557

PATIENT
  Age: 21 Year
  Sex: Female

DRUGS (2)
  1. DUPIXENT [Suspect]
     Active Substance: DUPILUMAB
     Indication: Eczema
     Dosage: 600 MG 1X
     Route: 058
     Dates: start: 20230724, end: 20230724
  2. DUPIXENT [Suspect]
     Active Substance: DUPILUMAB
     Dosage: 300 MG QOW
     Route: 058
     Dates: start: 2023, end: 20231103

REACTIONS (7)
  - Nephrolithiasis [Unknown]
  - Acne [Recovered/Resolved]
  - Asthma [Unknown]
  - Back pain [Not Recovered/Not Resolved]
  - Condition aggravated [Not Recovered/Not Resolved]
  - Eczema [Unknown]
  - Injection site reaction [Unknown]

NARRATIVE: CASE EVENT DATE: 20230101
